FAERS Safety Report 4459388-8 (Version None)
Quarter: 2004Q3

REPORT INFORMATION
  Report Type: 
  Country: None (occurrence: None)
  Receive Date: 20040927
  Receipt Date: 20040917
  Transmission Date: 20050211
  Serious: Yes (Other)
  Sender: FDA-Public Use
  Company Number: US-AMGEN-US091641

PATIENT
  Sex: Female

DRUGS (3)
  1. ENBREL [Suspect]
     Dates: start: 20040901
  2. FOLIC ACID [Concomitant]
  3. METHOTREXATE [Concomitant]

REACTIONS (3)
  - ANAPHYLACTIC REACTION [None]
  - ANGIONEUROTIC OEDEMA [None]
  - WHEEZING [None]
